FAERS Safety Report 19687443 (Version 7)
Quarter: 2022Q1

REPORT INFORMATION
  Report Type: Spontaneous
  Country: US (occurrence: US)
  Receive Date: 20210811
  Receipt Date: 20220316
  Transmission Date: 20220423
  Serious: Yes (Other)
  Sender: FDA-Public Use
  Company Number: US-PFIZER INC-202100997940

PATIENT
  Age: 64 Year
  Sex: Female

DRUGS (4)
  1. TOZINAMERAN [Suspect]
     Active Substance: TOZINAMERAN
     Indication: COVID-19 immunisation
     Dosage: DOSE 2, SINGLE
     Dates: start: 202104, end: 202104
  2. TOZINAMERAN [Suspect]
     Active Substance: TOZINAMERAN
     Dosage: DOSE 1, SINGLE
     Dates: start: 202103, end: 202103
  3. XELJANZ [Suspect]
     Active Substance: TOFACITINIB CITRATE
     Indication: Rheumatoid arthritis
     Dosage: 5 MG, 2X/DAY
     Route: 048
     Dates: start: 201909
  4. XELJANZ [Suspect]
     Active Substance: TOFACITINIB CITRATE
     Dosage: 5 MG, 2X/DAY
     Route: 048
     Dates: start: 202006

REACTIONS (6)
  - Drug ineffective [Unknown]
  - COVID-19 [Unknown]
  - Rheumatoid arthritis [Recovering/Resolving]
  - Herpes zoster [Unknown]
  - Abdominal pain [Unknown]
  - Illness [Unknown]

NARRATIVE: CASE EVENT DATE: 20210101
